FAERS Safety Report 15543486 (Version 1)
Quarter: 2018Q4

REPORT INFORMATION
  Report Type: Spontaneous
  Country: US (occurrence: US)
  Receive Date: 20181023
  Receipt Date: 20181023
  Transmission Date: 20190205
  Serious: Yes (Other)
  Sender: FDA-Public Use
  Company Number: US-NAPPMUNDI-USA-2018-0143647

PATIENT
  Sex: Female

DRUGS (2)
  1. HEROIN [Suspect]
     Active Substance: DIAMORPHINE
     Indication: DRUG ABUSE
     Dosage: UNK
     Route: 065
  2. OXYCONTIN [Suspect]
     Active Substance: OXYCODONE HYDROCHLORIDE
     Indication: OSTEOPHYTE FRACTURE
     Dosage: UNK
     Route: 048

REACTIONS (4)
  - Drug abuse [Recovering/Resolving]
  - Vomiting [Unknown]
  - Unevaluable event [Unknown]
  - Drug withdrawal syndrome [Unknown]
